FAERS Safety Report 19382837 (Version 1)
Quarter: 2021Q2

REPORT INFORMATION
  Report Type: Spontaneous
  Country: AE (occurrence: AE)
  Receive Date: 20210607
  Receipt Date: 20210607
  Transmission Date: 20210717
  Serious: Yes (Other)
  Sender: FDA-Public Use
  Company Number: AE-ALLERGAN-2121247US

PATIENT
  Sex: Female

DRUGS (4)
  1. FILLERS [Suspect]
     Active Substance: UNSPECIFIED INGREDIENT
     Indication: SKIN COSMETIC PROCEDURE
  2. FILLERS [Suspect]
     Active Substance: UNSPECIFIED INGREDIENT
     Indication: SKIN COSMETIC PROCEDURE
     Dosage: UNK
     Dates: start: 20210518, end: 20210518
  3. BOTOX [Suspect]
     Active Substance: ONABOTULINUMTOXINA
     Indication: SKIN WRINKLING
     Dosage: UNK UNK, SINGLE
     Dates: start: 20210518, end: 20210518
  4. FILLERS [Suspect]
     Active Substance: UNSPECIFIED INGREDIENT
     Indication: SKIN COSMETIC PROCEDURE

REACTIONS (4)
  - Angioedema [Unknown]
  - Swelling face [Recovered/Resolved]
  - Facial pain [Not Recovered/Not Resolved]
  - Facial paresis [Unknown]

NARRATIVE: CASE EVENT DATE: 202105
